FAERS Safety Report 5789599-0 (Version None)
Quarter: 2008Q2

REPORT INFORMATION
  Report Type: 
  Country: None (occurrence: None)
  Receive Date: 20080626
  Receipt Date: 20080623
  Transmission Date: 20081010
  Serious: Yes (Life-Threatening)
  Sender: FDA-Public Use
  Company Number: JP-ASTRAZENECA-2008AP04845

PATIENT
  Age: 44 Year
  Sex: Female

DRUGS (2)
  1. 1% DIPRIVAN INJECTION [Suspect]
     Indication: SEDATION
     Dosage: 360MG-6000MG/DAY
     Route: 041
     Dates: start: 20080421, end: 20080619
  2. FENTANYL-100 [Concomitant]
     Dosage: 1200??G/DAY
     Route: 041

REACTIONS (1)
  - HYPERTHERMIA MALIGNANT [None]
